FAERS Safety Report 4325607-1 (Version None)
Quarter: 2004Q1

REPORT INFORMATION
  Report Type: 
  Country: None (occurrence: None)
  Receive Date: 20040324
  Receipt Date: 20040315
  Transmission Date: 20041129
  Serious: Yes (Hospitalization, Other)
  Sender: FDA-Public Use
  Company Number: 163-20785-04030332

PATIENT
  Age: 83 Year
  Sex: Male

DRUGS (1)
  1. THALOMID [Suspect]
     Indication: MALIGNANT MELANOMA
     Dosage: 200 MG, QD, ORAL
     Route: 048
     Dates: start: 20040116

REACTIONS (1)
  - PULMONARY OEDEMA [None]
